FAERS Safety Report 6107603-7 (Version None)
Quarter: 2009Q1

REPORT INFORMATION
  Report Type: 
  Country: None (occurrence: None)
  Receive Date: 20090302
  Receipt Date: 20081009
  Transmission Date: 20090719
  Serious: Yes (Hospitalization)
  Sender: FDA-Public Use
  Company Number: WAES 0810USA02820

PATIENT
  Age: 47 Year
  Sex: Male

DRUGS (2)
  1. PRINIVIL [Suspect]
     Dosage: PO
     Route: 048
  2. CORGARD [Suspect]

REACTIONS (2)
  - BRADYCARDIA [None]
  - HYPOTENSION [None]
